FAERS Safety Report 7814469-3 (Version None)
Quarter: 2011Q4

REPORT INFORMATION
  Report Type: 
  Country: None (occurrence: None)
  Receive Date: 20111014
  Receipt Date: 20111006
  Transmission Date: 20120403
  Serious: Yes (Hospitalization, Other)
  Sender: FDA-Public Use
  Company Number: PHEH2009US03937

PATIENT
  Sex: Female

DRUGS (20)
  1. ZOMETA [Suspect]
     Indication: METASTATIC NEOPLASM
  2. FASLODEX [Concomitant]
  3. ZYRTEC [Concomitant]
  4. LEVEMIR [Concomitant]
  5. CHLORZOXAZONE [Concomitant]
  6. INSULIN [Concomitant]
  7. CIPROFLOXACIN [Concomitant]
  8. MELOXICAM [Concomitant]
  9. FOSAMAX [Suspect]
  10. CARDIZEM [Concomitant]
  11. METFORMIN HYDROCHLORIDE [Concomitant]
  12. LEXAPRO [Concomitant]
  13. NOVOLOG [Concomitant]
  14. ACCUPRIL [Concomitant]
  15. RESTORIL [Concomitant]
  16. MEGESTROL ACETATE [Concomitant]
  17. ZANTAC [Concomitant]
  18. LORTAB [Concomitant]
  19. FLUCONAZOLE [Concomitant]
  20. MUCINEX [Concomitant]

REACTIONS (41)
  - OEDEMA [None]
  - DISABILITY [None]
  - RECTAL POLYP [None]
  - GOITRE [None]
  - ABDOMINAL PAIN [None]
  - CHOLELITHIASIS [None]
  - CHRONIC SINUSITIS [None]
  - GASTROOESOPHAGEAL REFLUX DISEASE [None]
  - ANHEDONIA [None]
  - BONE LESION [None]
  - OSTEITIS [None]
  - RUBELLA [None]
  - KIDNEY INFECTION [None]
  - SEASONAL ALLERGY [None]
  - URTICARIA [None]
  - SCARLET FEVER [None]
  - CONSTIPATION [None]
  - PAIN IN EXTREMITY [None]
  - INJURY [None]
  - DIABETES MELLITUS [None]
  - CARDIAC MURMUR [None]
  - NEPHROLITHIASIS [None]
  - MUMPS [None]
  - BACK PAIN [None]
  - ASTHMA [None]
  - SKIN DISORDER [None]
  - HYPERTENSION [None]
  - VITAMIN D DECREASED [None]
  - PAIN [None]
  - BRONCHITIS [None]
  - ARTHRITIS [None]
  - HYPOKALAEMIA [None]
  - NECK PAIN [None]
  - OEDEMA PERIPHERAL [None]
  - OSTEONECROSIS OF JAW [None]
  - METASTASES TO BONE [None]
  - HAEMORRHOIDS [None]
  - OSTEOPOROSIS [None]
  - ANXIETY [None]
  - PNEUMONIA [None]
  - OSTEOPENIA [None]
